FAERS Safety Report 20819155 (Version 1)
Quarter: 2022Q2

REPORT INFORMATION
  Report Type: Spontaneous
  Country: US (occurrence: US)
  Receive Date: 20220512
  Receipt Date: 20220512
  Transmission Date: 20220721
  Serious: Yes (Other)
  Sender: FDA-Public Use
  Company Number: US-REGENERON PHARMACEUTICALS, INC.-2022-061529

PATIENT
  Age: 64 Year
  Sex: Female

DRUGS (1)
  1. EYLEA [Suspect]
     Active Substance: AFLIBERCEPT
     Indication: Diabetic neuropathy
     Dosage: UNK (EYLEA: INJECTION)
     Dates: start: 2021

REACTIONS (3)
  - Pulmonary hypertension [Unknown]
  - Off label use [Unknown]
  - Hypertension [Unknown]
